FAERS Safety Report 11296588 (Version 1)
Quarter: 2015Q3

REPORT INFORMATION
  Report Type: Spontaneous
  Country: US (occurrence: US)
  Receive Date: 20150722
  Receipt Date: 20150722
  Transmission Date: 20151125
  Serious: No
  Sender: FDA-Public Use
  Company Number: US-ELI_LILLY_AND_COMPANY-US201005000614

PATIENT
  Age: 80 Year
  Sex: Female
  Weight: 57.1 kg

DRUGS (12)
  1. EFFIENT [Suspect]
     Active Substance: PRASUGREL HYDROCHLORIDE
     Dosage: 10 MG, DAILY (1/D)
     Dates: start: 20100417
  2. DOCUSATE [Concomitant]
     Active Substance: DOCUSATE
  3. HEPARIN [Concomitant]
     Active Substance: HEPARIN SODIUM
     Dosage: 5000 D/F, 3/D
  4. ZOCOR [Concomitant]
     Active Substance: SIMVASTATIN
  5. IRON SULFATE [Concomitant]
     Active Substance: FERROUS SULFATE ANHYDROUS
  6. XOPENEX [Concomitant]
     Active Substance: LEVALBUTEROL HYDROCHLORIDE
  7. LORAZEPAM. [Concomitant]
     Active Substance: LORAZEPAM
  8. ALTEPLASE [Concomitant]
     Active Substance: ALTEPLASE
  9. PEPCID [Concomitant]
     Active Substance: FAMOTIDINE
  10. ATROVENT [Concomitant]
     Active Substance: IPRATROPIUM BROMIDE
  11. ASA [Concomitant]
     Active Substance: ASPIRIN
     Dosage: 300 MG, DAILY (1/D)
     Route: 054
  12. EFFIENT [Suspect]
     Active Substance: PRASUGREL HYDROCHLORIDE
     Indication: CORONARY ARTERY DISEASE
     Dosage: 60 MG, UNK
     Dates: start: 20100416, end: 20100416

REACTIONS (1)
  - Platelet count increased [Not Recovered/Not Resolved]
